FAERS Safety Report 9306084 (Version 1)
Quarter: 2013Q2

REPORT INFORMATION
  Report Type: Spontaneous
  Country: US (occurrence: US)
  Receive Date: 20130523
  Receipt Date: 20130523
  Transmission Date: 20140414
  Serious: No
  Sender: FDA-Public Use
  Company Number: US-BAUSCH-BL-2012-001601

PATIENT
  Sex: Male

DRUGS (1)
  1. IPRATROPIUM BROMIDE NASAL SOLUTION 0.06% [Suspect]
     Indication: HYPERSENSITIVITY
     Dosage: ONE SPRAY IN EACH NOSTRIL ONCE
     Route: 049
     Dates: start: 20121022, end: 20121022

REACTIONS (5)
  - Throat irritation [Recovered/Resolved]
  - Nasal discomfort [Recovered/Resolved]
  - Epistaxis [Recovered/Resolved]
  - Nasal dryness [Recovered/Resolved]
  - Nasal congestion [Unknown]
